FAERS Safety Report 17549913 (Version 1)
Quarter: 2020Q1

REPORT INFORMATION
  Report Type: Spontaneous
  Country: US (occurrence: US)
  Receive Date: 20200317
  Receipt Date: 20200317
  Transmission Date: 20200409
  Serious: No
  Sender: FDA-Public Use
  Company Number: US-PFIZER INC-2020094113

PATIENT
  Age: 83 Year
  Sex: Female
  Weight: 61.23 kg

DRUGS (1)
  1. PREMARIN [Suspect]
     Active Substance: ESTROGENS, CONJUGATED
     Indication: DRY SKIN
     Dosage: UNK UNK, 1X/DAY, (PILLS BY MOUTH, DOSE UNKNOWN, DIDN^T KNOW THERE WAS A DOSE TO IT, ONCE DAILY)
     Route: 048

REACTIONS (8)
  - Product use in unapproved indication [Unknown]
  - Pain [Unknown]
  - Weight abnormal [Unknown]
  - Off label use [Unknown]
  - Intentional product misuse [Unknown]
  - Drug effective for unapproved indication [Unknown]
  - Insomnia [Unknown]
  - Malaise [Unknown]
